FAERS Safety Report 8605522-5 (Version None)
Quarter: 2012Q3

REPORT INFORMATION
  Report Type: 
  Country: None (occurrence: None)
  Receive Date: 20120820
  Receipt Date: 20120809
  Transmission Date: 20120928
  Serious: Yes (Other)
  Sender: FDA-Public Use
  Company Number: US-ASTRAZENECA-2012SE56765

PATIENT
  Age: 77 Year
  Sex: Male

DRUGS (3)
  1. OMEPRAZOLE [Suspect]
     Route: 048
  2. PREVACID [Concomitant]
  3. NEXIUM [Concomitant]

REACTIONS (2)
  - PNEUMONIA [None]
  - VOMITING [None]
